FAERS Safety Report 9332621 (Version 1)
Quarter: 2013Q2

REPORT INFORMATION
  Report Type: Spontaneous
  Country: TR (occurrence: None)
  Receive Date: 20130603
  Receipt Date: 20130603
  Transmission Date: 20140414
  Serious: Yes (Disabling, Other)
  Sender: FDA-Public Use
  Company Number: 2013MPI00131

PATIENT
  Age: 40 Year
  Sex: Female

DRUGS (1)
  1. BRENTUXIMAB VEDOTIN (BRENTUXIMAB VEDOTIN) INJECTION [Suspect]
     Indication: HODGKIN^S DISEASE

REACTIONS (4)
  - Quadriparesis [None]
  - Paraneoplastic syndrome [None]
  - Neuropathy peripheral [None]
  - Chronic inflammatory demyelinating polyradiculoneuropathy [None]
